FAERS Safety Report 5868953-2 (Version None)
Quarter: 2008Q3

REPORT INFORMATION
  Report Type: 
  Country: None (occurrence: None)
  Receive Date: 20080903
  Receipt Date: 20080822
  Transmission Date: 20090109
  Serious: Yes (Death)
  Sender: FDA-Public Use
  Company Number: JP-ROCHE-556306

PATIENT
  Sex: Male
  Weight: 43 kg

DRUGS (4)
  1. XELODA [Suspect]
     Indication: RECTOSIGMOID CANCER
     Dosage: XELODA 300, 2 WEEKS ADMINISTERATION FOLLOWED BY 1 WEEK REST
     Route: 048
     Dates: start: 20080214, end: 20080221
  2. XELODA [Suspect]
     Dosage: 2 WEEKS ADMINISTERATION FOLLOWED BY 1 WEEK REST
     Route: 048
     Dates: start: 20080306, end: 20080320
  3. LEUCON [Concomitant]
     Route: 048
     Dates: start: 20080306, end: 20080328
  4. PRIMPERAN INJ [Concomitant]
     Route: 048
     Dates: start: 20080306, end: 20080328

REACTIONS (3)
  - DIARRHOEA [None]
  - PANCYTOPENIA [None]
  - SKIN EXFOLIATION [None]
